FAERS Safety Report 20068561 (Version 1)
Quarter: 2021Q4

REPORT INFORMATION
  Report Type: Spontaneous
  Country: US (occurrence: US)
  Receive Date: 20211115
  Receipt Date: 20211115
  Transmission Date: 20220303
  Serious: No
  Sender: FDA-Public Use
  Company Number: US-PFIZER INC-202101275944

PATIENT
  Age: 71 Year
  Sex: Female
  Weight: 48.073 kg

DRUGS (2)
  1. IBRANCE [Suspect]
     Active Substance: PALBOCICLIB
     Indication: Breast cancer female
     Dosage: 125 MG, 1X/DAY
     Dates: start: 20210801
  2. ACMIC [Concomitant]
     Dosage: UNK
     Dates: start: 202008

REACTIONS (1)
  - Blood potassium increased [Unknown]
